FAERS Safety Report 7604936-X (Version None)
Quarter: 2011Q3

REPORT INFORMATION
  Report Type: 
  Country: None (occurrence: None)
  Receive Date: 20110713
  Receipt Date: 20110705
  Transmission Date: 20111222
  Serious: Yes (Hospitalization)
  Sender: FDA-Public Use
  Company Number: US-BIOGENIDEC-2011BI017077

PATIENT
  Age: 53 Year
  Sex: Female

DRUGS (7)
  1. QUINIDINE HCL [Concomitant]
     Indication: AFFECT LABILITY
     Route: 048
     Dates: start: 20050101
  2. LEVOTHYROXINE SODIUM [Concomitant]
     Indication: HYPOTHYROIDISM
     Dates: start: 20040101
  3. LEXAPRO [Concomitant]
     Indication: DEPRESSION
     Route: 048
     Dates: start: 20080301
  4. VITAMIN D WITH CALCIUM [Concomitant]
  5. TYSABRI [Suspect]
     Indication: MULTIPLE SCLEROSIS
     Route: 042
     Dates: start: 20080813
  6. PRIMIDONE [Concomitant]
     Indication: TREMOR
     Route: 048
     Dates: start: 20040101
  7. DEXTROMETHORPHAN HYDROBROMIDE [Concomitant]
     Indication: AFFECT LABILITY
     Route: 048
     Dates: start: 20050101

REACTIONS (1)
  - ALCOHOL ABUSE [None]
